FAERS Safety Report 20528016 (Version 1)
Quarter: 2022Q1

REPORT INFORMATION
  Report Type: Spontaneous
  Country: US (occurrence: US)
  Receive Date: 20220228
  Receipt Date: 20220228
  Transmission Date: 20220423
  Serious: Yes (Other)
  Sender: FDA-Public Use
  Company Number: US-NOVARTISPH-NVSC2022US047078

PATIENT
  Age: 35 Year
  Sex: Female

DRUGS (3)
  1. RANITIDINE [Suspect]
     Active Substance: RANITIDINE
     Indication: Gastric ulcer
     Dosage: 25 MG,75 MG,,OTHER,PRODUCT USED FOR UNKNOWN INDICATION
     Route: 048
     Dates: start: 199708, end: 201911
  2. RANITIDINE [Suspect]
     Active Substance: RANITIDINE
     Indication: Gastric ulcer
     Dosage: 25 MG,75 MG,,OTHER,PRODUCT USED FOR UNKNOWN INDICATION
     Route: 048
     Dates: start: 199708, end: 201911
  3. RANITIDINE [Suspect]
     Active Substance: RANITIDINE
     Indication: Gastric ulcer
     Dosage: UNKNOWN AT THIS TIME,DAILY,
     Route: 048
     Dates: start: 199708, end: 201911

REACTIONS (5)
  - Breast cancer [Recovering/Resolving]
  - Lung neoplasm malignant [Recovering/Resolving]
  - Incorrect dose administered [Unknown]
  - Inappropriate schedule of product administration [Unknown]
  - Product use in unapproved indication [Unknown]

NARRATIVE: CASE EVENT DATE: 20090301
